FAERS Safety Report 18879716 (Version 4)
Quarter: 2021Q1

REPORT INFORMATION
  Report Type: Spontaneous
  Country: JP (occurrence: JP)
  Receive Date: 20210211
  Receipt Date: 20210308
  Transmission Date: 20210420
  Serious: Yes (Other)
  Sender: FDA-Public Use
  Company Number: JP-PFIZER INC-2021117252

PATIENT
  Age: 69 Year
  Sex: Male
  Weight: 52.5 kg

DRUGS (3)
  1. 5?FLUOROURACIL [FLUOROURACIL] [Suspect]
     Active Substance: FLUOROURACIL
     Indication: OESOPHAGEAL CARCINOMA
     Dosage: 800 MG/M2, CYCLIC, (DAY 1?5)
  2. DOCETAXEL. [Suspect]
     Active Substance: DOCETAXEL
     Indication: OESOPHAGEAL CARCINOMA
     Dosage: 30 MG/M2, CYCLIC (DAY 1 AND 15)
  3. CISPLATIN. [Suspect]
     Active Substance: CISPLATIN
     Indication: OESOPHAGEAL CARCINOMA
     Dosage: 80 MG/M2, CYCLIC, (DAY 1)

REACTIONS (2)
  - Renal failure [Unknown]
  - Hyperammonaemia [Recovered/Resolved]
